FAERS Safety Report 8949289 (Version 2)
Quarter: 2013Q1

REPORT INFORMATION
  Report Type: Spontaneous
  Country: US (occurrence: US)
  Receive Date: 20121206
  Receipt Date: 20130121
  Transmission Date: 20140127
  Serious: No
  Sender: FDA-Public Use
  Company Number: US-PFIZER INC-2012305499

PATIENT
  Age: 53 Year
  Sex: Male

DRUGS (3)
  1. INLYTA [Suspect]
     Indication: RENAL CANCER METASTATIC
     Dosage: 5 MG, 2X/DAY
     Route: 048
     Dates: start: 20120925
  2. XGEVA [Concomitant]
     Dosage: SQ OF 4 WKS
     Route: 058
     Dates: start: 201207
  3. CALCIUM WITH VITAMIN D [Concomitant]
     Dosage: UNK
     Route: 048
     Dates: start: 201207

REACTIONS (5)
  - Oral pain [Unknown]
  - Glossodynia [Unknown]
  - Tongue disorder [Unknown]
  - Somnolence [Unknown]
  - Abdominal pain upper [Unknown]
